FAERS Safety Report 5649843-7 (Version None)
Quarter: 2008Q1

REPORT INFORMATION
  Report Type: 
  Country: None (occurrence: None)
  Receive Date: 20080131
  Receipt Date: 20071011
  Transmission Date: 20080703
  Serious: No
  Sender: FDA-Public Use
  Company Number: 2006PV018087

PATIENT
  Age: 63 Year
  Sex: Female
  Weight: 81.2 kg

DRUGS (6)
  1. EXENATIDE(EXENATIDE) PEN,DISPOSABLE [Suspect]
     Indication: TYPE 2 DIABETES MELLITUS
     Dosage: 5 UG, 2/D, SUBCUTANEOUS ; 10 UG, 2/D, SUBCUTANEOUS ; 10 UG, 3/D, SUBCUTANEOUS
     Route: 058
     Dates: start: 20060501, end: 20060601
  2. EXENATIDE(EXENATIDE) PEN,DISPOSABLE [Suspect]
     Indication: TYPE 2 DIABETES MELLITUS
     Dosage: 5 UG, 2/D, SUBCUTANEOUS ; 10 UG, 2/D, SUBCUTANEOUS ; 10 UG, 3/D, SUBCUTANEOUS
     Route: 058
     Dates: start: 20060601
  3. HUMALOG [Concomitant]
  4. LANTUS [Concomitant]
  5. AVANDIA [Concomitant]
  6. .. [Concomitant]

REACTIONS (7)
  - BLOOD GLUCOSE DECREASED [None]
  - BLOOD GLUCOSE INCREASED [None]
  - CONFUSIONAL STATE [None]
  - DECREASED APPETITE [None]
  - HYPOAESTHESIA ORAL [None]
  - NAUSEA [None]
  - WEIGHT DECREASED [None]
